FAERS Safety Report 4320584-1 (Version None)
Quarter: 2004Q1

REPORT INFORMATION
  Report Type: 
  Country: None (occurrence: None)
  Receive Date: 20040311
  Receipt Date: 20040225
  Transmission Date: 20041129
  Serious: Yes (Other)
  Sender: FDA-Public Use
  Company Number: 601116

PATIENT
  Age: 57 Year
  Sex: Female
  Weight: 75.2971 kg

DRUGS (12)
  1. GAMMAGARD S/D [Suspect]
     Indication: IMMUNODEFICIENCY COMMON VARIABLE
     Dosage: 25GM;Q4W;INTRAVENOUS
     Route: 042
     Dates: start: 20031210, end: 20031210
  2. LIPITOR [Concomitant]
  3. ZOLOFT [Concomitant]
  4. PREDNISONE [Concomitant]
  5. SINGULAIR [Concomitant]
  6. ATENOLOL [Concomitant]
  7. THEOPHYLLINE [Concomitant]
  8. COMBIVENT [Concomitant]
  9. ASPIRIN [Concomitant]
  10. OXYGEN [Concomitant]
  11. MULTIVITAMIN [Concomitant]
  12. CALCIUM [Concomitant]

REACTIONS (19)
  - ASTHMA [None]
  - BLOOD PRESSURE INCREASED [None]
  - CAROTID ARTERY STENOSIS [None]
  - CEREBRAL INFARCTION [None]
  - COMPLICATED MIGRAINE [None]
  - COORDINATION ABNORMAL [None]
  - DIZZINESS [None]
  - DYSARTHRIA [None]
  - FEELING ABNORMAL [None]
  - HEADACHE [None]
  - HYPOAESTHESIA [None]
  - LARGE INTESTINE PERFORATION [None]
  - MONOPARESIS [None]
  - MYOCARDIAL INFARCTION [None]
  - NAUSEA [None]
  - RESPIRATORY FAILURE [None]
  - TRANSIENT ISCHAEMIC ATTACK [None]
  - VISION BLURRED [None]
  - VISUAL DISTURBANCE [None]
